FAERS Safety Report 4571779-3 (Version None)
Quarter: 2005Q1

REPORT INFORMATION
  Report Type: 
  Country: None (occurrence: None)
  Receive Date: 20050207
  Receipt Date: 20050131
  Transmission Date: 20050727
  Serious: Yes (Hospitalization)
  Sender: FDA-Public Use
  Company Number: US-JNJFOC-20050200513

PATIENT
  Sex: Female
  Weight: 52.16 kg

DRUGS (3)
  1. DURAGESIC [Suspect]
     Route: 062
     Dates: start: 20040401
  2. WELLBUTRIN [Concomitant]
     Indication: BIPOLAR DISORDER
     Route: 049
     Dates: start: 20041201
  3. KLONIPIN [Concomitant]
     Indication: ANXIETY
     Route: 049
     Dates: start: 20040101

REACTIONS (3)
  - BLOOD MAGNESIUM DECREASED [None]
  - DIZZINESS [None]
  - HYPOTENSION [None]
